FAERS Safety Report 9073127 (Version 1)
Quarter: 2013Q1

REPORT INFORMATION
  Report Type: Report from Study
  Country: US (occurrence: US)
  Receive Date: 20130128
  Receipt Date: 20130128
  Transmission Date: 20140127
  Serious: No
  Sender: FDA-Public Use
  Company Number: US-ABBOTT-12P-163-0896433-00

PATIENT
  Age: 60 None
  Sex: Female
  Weight: 95.34 kg

DRUGS (17)
  1. HUMIRA 40 MG/0.8 ML PEN [Suspect]
     Indication: RHEUMATOID ARTHRITIS
     Dates: start: 201101, end: 201101
  2. HUMIRA 40 MG/0.8 ML PEN [Suspect]
     Dates: start: 20120120, end: 20120120
  3. HUMIRA 40 MG/0.8 ML PEN [Suspect]
  4. HUMIRA 40 MG/ 0.8 ML PRE-FILLED SYRINGE [Suspect]
     Indication: RHEUMATOID ARTHRITIS
     Dates: start: 201101, end: 201201
  5. SYNTHROID [Concomitant]
     Indication: HYPOTHYROIDISM
  6. MAGNESIUM [Concomitant]
     Indication: SUPPLEMENTATION THERAPY
  7. FOLIC ACID [Concomitant]
     Indication: VITAMIN SUPPLEMENTATION
  8. CALCIUM [Concomitant]
     Indication: SUPPLEMENTATION THERAPY
  9. PREDNISONE [Concomitant]
     Indication: RHEUMATOID ARTHRITIS
  10. METHOTREXATE [Concomitant]
     Indication: RHEUMATOID ARTHRITIS
  11. VENTOLIN [Concomitant]
     Indication: ASTHMA
  12. ADVAIR [Concomitant]
     Indication: ASTHMA
  13. SINGULAIR [Concomitant]
     Indication: HYPERSENSITIVITY
  14. NEXIUM [Concomitant]
     Indication: PRODUCT USED FOR UNKNOWN INDICATION
  15. BUPROPION [Concomitant]
     Indication: DEPRESSION
  16. ABILIFY [Concomitant]
     Indication: PRODUCT USED FOR UNKNOWN INDICATION
  17. PLAQUENIL [Concomitant]
     Indication: RHEUMATOID ARTHRITIS

REACTIONS (10)
  - Injection site pain [Recovered/Resolved]
  - Pruritus [Not Recovered/Not Resolved]
  - Paraesthesia [Recovered/Resolved]
  - Headache [Recovered/Resolved]
  - Nausea [Recovered/Resolved]
  - Feeling hot [Not Recovered/Not Resolved]
  - Burning sensation [Recovered/Resolved]
  - Hypoaesthesia [Recovered/Resolved]
  - Bone pain [Recovered/Resolved]
  - Device malfunction [Unknown]
